FAERS Safety Report 22747206 (Version 6)
Quarter: 2024Q1

REPORT INFORMATION
  Report Type: Spontaneous
  Country: US (occurrence: US)
  Receive Date: 20230725
  Receipt Date: 20240327
  Transmission Date: 20240410
  Serious: No
  Sender: FDA-Public Use
  Company Number: US-SA-SAC20230724000136

PATIENT
  Age: 65 Year
  Sex: Female

DRUGS (72)
  1. DUPIXENT [Suspect]
     Active Substance: DUPILUMAB
     Indication: Dermatitis atopic
     Dosage: 300 MG, QOW
     Route: 058
     Dates: start: 202307
  2. ASPIRIN [Concomitant]
     Active Substance: ASPIRIN
     Dosage: UNK
  3. ESZOPICLONE [Concomitant]
     Active Substance: ESZOPICLONE
     Dosage: UNK
  4. ESZOPICLONE [Concomitant]
     Active Substance: ESZOPICLONE
  5. FLUTICASONE [Concomitant]
     Active Substance: FLUTICASONE
  6. FLUTICASONE [Concomitant]
     Active Substance: FLUTICASONE
  7. FUROSEMIDE [Concomitant]
     Active Substance: FUROSEMIDE
  8. FUROSEMIDE [Concomitant]
     Active Substance: FUROSEMIDE
  9. HYDROXYZINE [Concomitant]
     Active Substance: HYDROXYZINE HYDROCHLORIDE
  10. HYDROXYZINE [Concomitant]
     Active Substance: HYDROXYZINE HYDROCHLORIDE
  11. INSULIN ASPART [Concomitant]
     Active Substance: INSULIN ASPART
  12. INVOKANA [Concomitant]
     Active Substance: CANAGLIFLOZIN
  13. INVOKANA [Concomitant]
     Active Substance: CANAGLIFLOZIN
  14. LEVALBUTEROL [Concomitant]
     Active Substance: LEVALBUTEROL
  15. LEVALBUTEROL [Concomitant]
     Active Substance: LEVALBUTEROL
  16. MELOXICAM [Concomitant]
     Active Substance: MELOXICAM
  17. MELOXICAM [Concomitant]
     Active Substance: MELOXICAM
  18. MOMETASONE [Concomitant]
     Active Substance: MOMETASONE
  19. MONTELUKAST [Concomitant]
     Active Substance: MONTELUKAST SODIUM
  20. MONTELUKAST [Concomitant]
     Active Substance: MONTELUKAST SODIUM
  21. NEOMYCIN\POLYMYXIN [Concomitant]
     Active Substance: NEOMYCIN\POLYMYXIN
     Dosage: UNK
  22. POTASSIUM [Concomitant]
     Active Substance: POTASSIUM
  23. ROSUVASTATIN [Concomitant]
     Active Substance: ROSUVASTATIN
  24. ROSUVASTATIN [Concomitant]
     Active Substance: ROSUVASTATIN
  25. TADALAFIL [Concomitant]
     Active Substance: TADALAFIL
  26. TADALAFIL [Concomitant]
     Active Substance: TADALAFIL
  27. TRELEGY ELLIPTA [Concomitant]
     Active Substance: FLUTICASONE FUROATE\UMECLIDINIUM BROMIDE\VILANTEROL TRIFENATATE
  28. TRELEGY ELLIPTA [Concomitant]
     Active Substance: FLUTICASONE FUROATE\UMECLIDINIUM BROMIDE\VILANTEROL TRIFENATATE
  29. TRULICITY [Concomitant]
     Active Substance: DULAGLUTIDE
  30. TRULICITY [Concomitant]
     Active Substance: DULAGLUTIDE
  31. ZYRTEC [Concomitant]
     Active Substance: CETIRIZINE HYDROCHLORIDE
  32. ZYRTEC [Concomitant]
     Active Substance: CETIRIZINE HYDROCHLORIDE
  33. LINZESS [Concomitant]
     Active Substance: LINACLOTIDE
  34. LINZESS [Concomitant]
     Active Substance: LINACLOTIDE
  35. PREGABALIN [Concomitant]
     Active Substance: PREGABALIN
  36. PREGABALIN [Concomitant]
     Active Substance: PREGABALIN
  37. GABAPENTIN [Concomitant]
     Active Substance: GABAPENTIN
  38. HYDROCODONE BITARTRATE AND ACETAMINOPHEN [Concomitant]
     Active Substance: ACETAMINOPHEN\HYDROCODONE BITARTRATE
  39. PREDNISONE [Concomitant]
     Active Substance: PREDNISONE
  40. METFORMIN HYDROCHLORIDE [Concomitant]
     Active Substance: METFORMIN HYDROCHLORIDE
  41. ADVAIR HFA [Concomitant]
     Active Substance: FLUTICASONE PROPIONATE\SALMETEROL XINAFOATE
  42. DICLOFENAC SODIUM [Concomitant]
     Active Substance: DICLOFENAC\DICLOFENAC SODIUM
  43. HYDROCHLOROTHIAZIDE [Concomitant]
     Active Substance: HYDROCHLOROTHIAZIDE
  44. TRIHEXYPHENIDYL HYDROCHLORIDE [Concomitant]
     Active Substance: TRIHEXYPHENIDYL HYDROCHLORIDE
  45. ATORVASTATIN CALCIUM [Concomitant]
     Active Substance: ATORVASTATIN CALCIUM
  46. DILTIAZEM [Concomitant]
     Active Substance: DILTIAZEM
  47. LOSARTAN POTASSIUM [Concomitant]
     Active Substance: LOSARTAN POTASSIUM
  48. SPIRIVA [Concomitant]
     Active Substance: TIOTROPIUM BROMIDE MONOHYDRATE
  49. TEMAZEPAM [Concomitant]
     Active Substance: TEMAZEPAM
  50. CITALOPRAM [Concomitant]
     Active Substance: CITALOPRAM\CITALOPRAM HYDROBROMIDE
  51. LORAZEPAM [Concomitant]
     Active Substance: LORAZEPAM
  52. THEOPHYLLINE [Concomitant]
     Active Substance: THEOPHYLLINE
  53. THEOPHYLLINE [Concomitant]
     Active Substance: THEOPHYLLINE
  54. TRIFLUOPERAZINE HCL [Concomitant]
  55. OMEPRAZOLE [Concomitant]
     Active Substance: OMEPRAZOLE
  56. ALBUTEROL [Concomitant]
     Active Substance: ALBUTEROL
  57. MINOCYCLINE HYDROCHLORIDE [Concomitant]
     Active Substance: MINOCYCLINE HYDROCHLORIDE
  58. LANTUS SOLOSTAR [Concomitant]
     Active Substance: INSULIN GLARGINE
  59. LANTUS SOLOSTAR [Concomitant]
     Active Substance: INSULIN GLARGINE
  60. VENTOLIN HFA [Concomitant]
     Active Substance: ALBUTEROL SULFATE
  61. VENTOLIN HFA [Concomitant]
     Active Substance: ALBUTEROL SULFATE
  62. ACETAMINOPHEN [Concomitant]
     Active Substance: ACETAMINOPHEN
  63. ACETAMINOPHEN [Concomitant]
     Active Substance: ACETAMINOPHEN
  64. DEXLANSOPRAZOLE [Concomitant]
     Active Substance: DEXLANSOPRAZOLE
  65. DEXLANSOPRAZOLE [Concomitant]
     Active Substance: DEXLANSOPRAZOLE
  66. ERGOCALCIFEROL [Concomitant]
     Active Substance: ERGOCALCIFEROL
  67. HYDROCORTISONE [Concomitant]
     Active Substance: HYDROCORTISONE
  68. HYDROCORTISONE [Concomitant]
     Active Substance: HYDROCORTISONE
  69. LEVALBUTEROL [Concomitant]
     Active Substance: LEVALBUTEROL
  70. LEVALBUTEROL [Concomitant]
     Active Substance: LEVALBUTEROL
  71. TRIAMCINOLONE [Concomitant]
     Active Substance: TRIAMCINOLONE
     Dosage: UNK
  72. SPIRONOLACTONE [Concomitant]
     Active Substance: SPIRONOLACTONE
     Dosage: UNK

REACTIONS (14)
  - Sleep disorder [Unknown]
  - Initial insomnia [Unknown]
  - Ocular hyperaemia [Unknown]
  - Erythema of eyelid [Unknown]
  - Eyelids pruritus [Unknown]
  - Swelling of eyelid [Unknown]
  - Eye pruritus [Unknown]
  - Eye swelling [Unknown]
  - Eye inflammation [Unknown]
  - Blepharitis [Unknown]
  - Injection site pain [Unknown]
  - Condition aggravated [Unknown]
  - Drug effect less than expected [Unknown]
  - Drug ineffective [Unknown]

NARRATIVE: CASE EVENT DATE: 20230101
